FAERS Safety Report 4775919-2 (Version None)
Quarter: 2005Q3

REPORT INFORMATION
  Report Type: 
  Country: None (occurrence: None)
  Receive Date: 20050922
  Receipt Date: 20050919
  Transmission Date: 20060218
  Serious: Yes (Hospitalization)
  Sender: FDA-Public Use
  Company Number: US-MERCK-0509USA02602

PATIENT
  Age: 67 Year
  Sex: Female

DRUGS (2)
  1. VIOXX [Suspect]
     Indication: ARTHROPATHY
     Route: 048
     Dates: start: 20010101, end: 20030101
  2. CELEBREX [Concomitant]
     Route: 065

REACTIONS (3)
  - BALANCE DISORDER [None]
  - CARDIAC DISORDER [None]
  - EYE HAEMORRHAGE [None]
